FAERS Safety Report 4927988-4 (Version None)
Quarter: 2006Q1

REPORT INFORMATION
  Report Type: 
  Country: None (occurrence: None)
  Receive Date: 20060131
  Receipt Date: 20051130
  Transmission Date: 20060701
  Serious: Yes (Hospitalization)
  Sender: FDA-Public Use
  Company Number: 200519935US

PATIENT
  Age: 82 Year
  Sex: Male
  Weight: 72.72 kg

DRUGS (1)
  1. KETEK [Suspect]
     Indication: UPPER RESPIRATORY TRACT INFECTION
     Dosage: 800 MG PO
     Route: 048
     Dates: start: 20051109, end: 20051109

REACTIONS (1)
  - MYASTHENIA GRAVIS CRISIS [None]
